FAERS Safety Report 16121049 (Version 1)
Quarter: 2019Q1

REPORT INFORMATION
  Report Type: Spontaneous
  Country: US (occurrence: US)
  Receive Date: 20190327
  Receipt Date: 20190327
  Transmission Date: 20190418
  Serious: Yes (Other)
  Sender: FDA-Public Use
  Company Number: US-HBP-2019US018567

PATIENT
  Sex: Male

DRUGS (9)
  1. MULTIVITAMIN                       /07504101/ [Concomitant]
     Active Substance: VITAMINS
  2. VALCHLOR [Suspect]
     Active Substance: MECHLORETHAMINE
     Indication: MYCOSIS FUNGOIDES
     Dosage: UNK, UNKNOWN
     Route: 061
     Dates: start: 20170502
  3. VITAMIN D3 [Concomitant]
     Active Substance: CHOLECALCIFEROL
  4. TURMERIC                           /01079601/ [Concomitant]
     Active Substance: HERBALS\TURMERIC
  5. CRESTOR [Concomitant]
     Active Substance: ROSUVASTATIN CALCIUM
  6. FLOMAX [Concomitant]
     Active Substance: TAMSULOSIN HYDROCHLORIDE
  7. VITAMIN B COMPLEX [Concomitant]
     Active Substance: CYANOCOBALAMIN\DEXPANTHENOL\NIACINAMIDE\PYRIDOXINE HYDROCHLORIDE\RIBOFLAVIN 5^-PHOSPHATE SODIUM\THIAMINE HYDROCHLORIDE\VITAMIN B COMPLEX
  8. ASPIRIN                            /00002701/ [Concomitant]
     Active Substance: ASPIRIN
  9. COENZYME Q10 [Concomitant]
     Active Substance: UBIDECARENONE

REACTIONS (1)
  - Squamous cell carcinoma [Unknown]
